FAERS Safety Report 20625484 (Version 1)
Quarter: 2022Q1

REPORT INFORMATION
  Report Type: Spontaneous
  Country: US (occurrence: US)
  Receive Date: 20220323
  Receipt Date: 20220323
  Transmission Date: 20220423
  Serious: No
  Sender: FDA-Public Use
  Company Number: US-AIMMUNE THERAPEUTICS, INC.-2022AIMT00202

PATIENT

DRUGS (2)
  1. PALFORZIA [Suspect]
     Active Substance: PEANUT
     Indication: Food allergy
     Dosage: 240 MG, 1X/DAY
     Route: 048
     Dates: start: 202202
  2. PALFORZIA [Suspect]
     Active Substance: PEANUT
     Dosage: 100 MG, 1X/DAY
     Route: 048

REACTIONS (1)
  - Dyspepsia [Unknown]
